FAERS Safety Report 9773095 (Version 1)
Quarter: 2013Q4

REPORT INFORMATION
  Report Type: Spontaneous
  Country: US (occurrence: None)
  Receive Date: 20131217
  Receipt Date: 20131217
  Transmission Date: 20140711
  Serious: Yes (Hospitalization)
  Sender: FDA-Public Use
  Company Number: IPC201312-000497

PATIENT
  Age: 59 Year
  Sex: Male

DRUGS (23)
  1. FUROSEMIDE [Suspect]
     Dosage: 40 MG DAILY
  2. METOPROLOL TARTRATE (METOPROLOL TARTRATE) (METOPROLOL TARTRATE) [Suspect]
     Dosage: 50 MG, EVERY 12 HOURS
  3. WARFARIN (WARFARIN) (WARFARIN) [Suspect]
     Dosage: 2-4 MG DAILY
  4. RANITIDINE [Suspect]
     Dosage: 150 MG, TWICE DAILY
  5. DIGOXIN (DIGOXIN) (DIGOXIN) [Suspect]
     Dosage: 0.125 MG DAILY
  6. LISINOPRIL (LISINOPRIL) (LISINOPRIL) [Suspect]
     Dosage: 5 MG DAILY
  7. NYSTOP [Suspect]
     Dosage: 100,000 UNITS/G TWICE DAILY
     Route: 061
  8. NYSTATIN [Suspect]
     Dosage: 100,000 UNITS/ML 1 TEASPOONFUL 4 TIMES DAILY
  9. INSULIN LISPRO [Suspect]
     Indication: PROPHYLAXIS
     Dosage: 100 UNITS/ML
  10. ACETAMINOPHEN [Suspect]
     Dosage: 650 MG, EVERY 6 HOURS AS NEEDED
  11. MILK OF MAGNESIA [Suspect]
     Dosage: 30 ML DAILY, AS NEEDED
  12. BISACODYL [Suspect]
     Dosage: 10 MG ONCE DAILY, AS NEEDED
  13. OMEPRAZOLE (OMEPRAZOLE) (OMEPRAZOLE) [Suspect]
     Dosage: 20 MG DAILY
  14. DIPHENHYDRAMINE (DIPHENHYDRAMINE) (DIPHENHYDRAMINE) [Suspect]
     Dosage: 25 MG, EVERY 6 HOURS FOR 48 HOURS
  15. GUAIFENESIN [Suspect]
     Dosage: 600 MG, TWICE DAILY
  16. SENNA/DOCUSATE SODIUM [Suspect]
     Dosage: 8.6/5 MG, TWICE DAILY, ORAL
     Route: 048
  17. TRIAMCINOLONE [Suspect]
     Dosage: 0.1%, TWICE DAILY
  18. FLUTICASONE PROPIONATE [Suspect]
     Dosage: 220 MICROGRAM, TWICE DAILY
  19. ONDANSETRON [Suspect]
     Dosage: 4 MG, EVERY 6 HOURS AS NEEDED
  20. ALBUTEROL [Suspect]
     Dosage: 0.083% (INHALE ONE VIAL EVERY 2 HOURS, AS NEEDED), INHALATION
     Route: 055
  21. DIMETHICONE [Suspect]
     Dosage: 5%, APPLY TOPICALLY TO BUTTOCKS TWICE DAILY, UNTIL CLEAR, TOPICAL
     Route: 061
  22. CEPHALEXIN (CEPHALEXIN) (CEPHALEXIN) [Concomitant]
  23. AMIODARONE (AMIODARONE) (AMIODARONE) [Concomitant]

REACTIONS (7)
  - Cerebral infarction [None]
  - Urinary retention [None]
  - Depression [None]
  - Dyspnoea [None]
  - Drug interaction [None]
  - International normalised ratio fluctuation [None]
  - Haemorrhagic infarction [None]
